FAERS Safety Report 23424144 (Version 1)
Quarter: 2024Q1

REPORT INFORMATION
  Report Type: Spontaneous
  Country: GB (occurrence: GB)
  Receive Date: 20240120
  Receipt Date: 20240120
  Transmission Date: 20240409
  Serious: Yes (Other)
  Sender: FDA-Public Use
  Company Number: None

PATIENT
  Age: 43 Year
  Weight: 60.2 kg

DRUGS (3)
  1. DEXTROAMPHETAMINE [Suspect]
     Active Substance: DEXTROAMPHETAMINE
     Indication: Attention deficit hyperactivity disorder
     Dosage: 20 MG TABLETS
     Route: 065
     Dates: start: 20231110
  2. DEXTROAMPHETAMINE [Suspect]
     Active Substance: DEXTROAMPHETAMINE
     Indication: Attention deficit hyperactivity disorder
     Dosage: TWO TO SIX TABLETS DAILY AS REQUIRED
     Route: 065
     Dates: start: 20230811, end: 202311
  3. BENZOYL PEROXIDE AND CLINDAMYCIN [Concomitant]
     Indication: Product used for unknown indication
     Dosage: APPLY IN THE EVENING
     Route: 065
     Dates: start: 20231121, end: 20240103

REACTIONS (4)
  - Rash [Not Recovered/Not Resolved]
  - Acne [Recovering/Resolving]
  - Blindness [Recovered/Resolved]
  - Urticaria [Recovering/Resolving]

NARRATIVE: CASE EVENT DATE: 20231007
